FAERS Safety Report 5879530-1 (Version None)
Quarter: 2008Q3

REPORT INFORMATION
  Report Type: 
  Country: None (occurrence: None)
  Receive Date: 20080911
  Receipt Date: 20080911
  Transmission Date: 20090109
  Serious: Yes (Other)
  Sender: FDA-Public Use
  Company Number: None

PATIENT
  Age: 27 Year
  Sex: Female
  Weight: 77.1115 kg

DRUGS (1)
  1. MAXIDEX [Suspect]
     Indication: CONJUNCTIVITIS
     Dosage: 1 DROP 2 / DAY
     Dates: start: 20080907, end: 20080908

REACTIONS (4)
  - DRY EYE [None]
  - DYSGEUSIA [None]
  - HEADACHE [None]
  - PALPITATIONS [None]
